FAERS Safety Report 19098430 (Version 2)
Quarter: 2021Q3

REPORT INFORMATION
  Report Type: Spontaneous
  Country: US (occurrence: US)
  Receive Date: 20210406
  Receipt Date: 20210704
  Transmission Date: 20211014
  Serious: Yes (Life-Threatening, Hospitalization)
  Sender: FDA-Public Use
  Company Number: US-TEVA-2021-US-1895765

PATIENT
  Age: 17 Year
  Sex: Male

DRUGS (3)
  1. ETOPOSIDE. [Suspect]
     Active Substance: ETOPOSIDE
     Indication: ACUTE MYELOID LEUKAEMIA
     Dosage: SYSTEMIC
     Route: 065
  2. CYTARABINE. [Suspect]
     Active Substance: CYTARABINE
     Indication: ACUTE MYELOID LEUKAEMIA
     Route: 037
  3. CYTARABINE. [Suspect]
     Active Substance: CYTARABINE
     Route: 065

REACTIONS (9)
  - Encephalitis [Unknown]
  - Sepsis [Unknown]
  - Brain oedema [Unknown]
  - Stomatococcal infection [Unknown]
  - Meningitis [Unknown]
  - Pneumonia [Unknown]
  - Coma [Unknown]
  - Febrile neutropenia [Unknown]
  - CNS ventriculitis [Unknown]
